FAERS Safety Report 8862884 (Version 2)
Quarter: 2013Q1

REPORT INFORMATION
  Report Type: Report from Study
  Country: US (occurrence: US)
  Receive Date: 20121026
  Receipt Date: 20130215
  Transmission Date: 20140127
  Serious: Yes (Hospitalization)
  Sender: FDA-Public Use
  Company Number: US-ABBOTT-12P-163-0997543-00

PATIENT
  Age: 49 None
  Sex: Female
  Weight: 54.48 kg

DRUGS (8)
  1. HUMIRA [Suspect]
     Indication: CROHN^S DISEASE
     Dates: start: 2009
  2. HUMIRA [Suspect]
     Dates: end: 2011
  3. HUMIRA [Suspect]
     Dates: start: 201107
  4. HUMIRA [Suspect]
     Dosage: ON HOLD
     Dates: end: 201209
  5. LEVOTHYROXINE [Concomitant]
     Indication: THYROID DISORDER
  6. TYLENOL [Concomitant]
     Indication: PRODUCT USED FOR UNKNOWN INDICATION
  7. AMBIEN [Concomitant]
     Indication: INSOMNIA
  8. LIALDA [Concomitant]
     Indication: GASTRIC DISORDER

REACTIONS (24)
  - Malaise [Recovered/Resolved]
  - Crohn^s disease [Recovered/Resolved]
  - Chills [Recovered/Resolved]
  - Dehydration [Recovered/Resolved]
  - Pallor [Unknown]
  - Cough [Unknown]
  - Tachycardia [Unknown]
  - Chest pain [Unknown]
  - Arthralgia [Unknown]
  - Sinus headache [Unknown]
  - Vitamin D decreased [Unknown]
  - Sinusitis [Unknown]
  - General physical condition abnormal [Unknown]
  - Stress [Unknown]
  - Nasopharyngitis [Recovered/Resolved]
  - Malaise [Recovered/Resolved]
  - Nasopharyngitis [Recovered/Resolved]
  - Decreased appetite [Recovered/Resolved]
  - Vomiting [Recovered/Resolved]
  - Pyrexia [Recovered/Resolved]
  - Nausea [Recovered/Resolved]
  - Cough [Recovered/Resolved]
  - Drug dose omission [Unknown]
  - Inappropriate schedule of drug administration [Unknown]
